FAERS Safety Report 4351134-1 (Version None)
Quarter: 2004Q2

REPORT INFORMATION
  Report Type: 
  Country: None (occurrence: None)
  Receive Date: 20040430
  Receipt Date: 20040412
  Transmission Date: 20050107
  Serious: Yes (Death)
  Sender: FDA-Public Use
  Company Number: JP-MERCK-0404USA01498

PATIENT
  Age: 90 Year
  Sex: Male

DRUGS (3)
  1. PRIMAXIN [Suspect]
     Indication: PNEUMONIA
     Route: 041
     Dates: start: 20040410, end: 20040412
  2. CLINDAMYCIN HYDROCHLORIDE [Suspect]
     Indication: PNEUMONIA
     Route: 065
     Dates: start: 20040410, end: 20040412
  3. ANTIMICROBIAL (UNSPECIFIED) [Concomitant]
     Indication: PNEUMONIA
     Route: 065
     Dates: start: 20040410, end: 20040412

REACTIONS (5)
  - ALANINE AMINOTRANSFERASE INCREASED [None]
  - ASPARTATE AMINOTRANSFERASE INCREASED [None]
  - DISSEMINATED INTRAVASCULAR COAGULATION [None]
  - LIVER DISORDER [None]
  - PNEUMONIA [None]
